FAERS Safety Report 6304467-3 (Version None)
Quarter: 2009Q3

REPORT INFORMATION
  Report Type: 
  Country: None (occurrence: None)
  Receive Date: 20090811
  Receipt Date: 20090722
  Transmission Date: 20100115
  Serious: Yes (Other)
  Sender: FDA-Public Use
  Company Number: PHHY2009CA31529

PATIENT
  Sex: Male

DRUGS (11)
  1. EXELON [Suspect]
     Indication: DEMENTIA ALZHEIMER'S TYPE
     Dosage: 1.5 MG, BID
     Route: 048
     Dates: start: 20090409
  2. EXELON [Suspect]
     Dosage: 3 MG, BID
     Route: 048
     Dates: start: 20090604
  3. EXELON [Suspect]
     Dosage: 4.5 MG, BID
     Route: 048
     Dates: start: 20090710
  4. COREG [Concomitant]
  5. LANOXIN [Concomitant]
  6. VASOTEC [Concomitant]
  7. ZOCOR [Concomitant]
  8. GLUCOPHAGE [Concomitant]
  9. COUMADIN [Concomitant]
  10. PRILOSEC [Concomitant]
  11. CEFTIN [Concomitant]
     Dosage: UNK
     Dates: start: 20090702, end: 20090711

REACTIONS (3)
  - DRY SKIN [None]
  - SKIN EXFOLIATION [None]
  - SUNBURN [None]
